FAERS Safety Report 9415116 (Version 1)
Quarter: 2013Q3

REPORT INFORMATION
  Report Type: Spontaneous
  Country: AU (occurrence: AU)
  Receive Date: 20130723
  Receipt Date: 20130723
  Transmission Date: 20140515
  Serious: Yes (Other)
  Sender: FDA-Public Use
  Company Number: PHHY2013AU076927

PATIENT
  Age: 33 Year
  Sex: Female

DRUGS (2)
  1. ZOMETA [Suspect]
     Dosage: UNK
  2. OCTREOTIDE [Suspect]
     Dosage: UKN

REACTIONS (2)
  - Cranial nerve disorder [Unknown]
  - Headache [Unknown]
